FAERS Safety Report 13239983 (Version 1)
Quarter: 2017Q1

REPORT INFORMATION
  Report Type: Spontaneous
  Country: US (occurrence: US)
  Receive Date: 20170216
  Receipt Date: 20170216
  Transmission Date: 20170428
  Serious: No
  Sender: FDA-Public Use
  Company Number: US-PFIZER INC-2017070400

PATIENT
  Sex: Female

DRUGS (7)
  1. LYRICA [Suspect]
     Active Substance: PREGABALIN
     Indication: SPINAL PAIN
     Dosage: 200 MG, 2X/DAY (TAKING DOSE TWO TIMES A DAY)
  2. LYRICA [Suspect]
     Active Substance: PREGABALIN
     Indication: FIBROMYALGIA
  3. SPIRONOLACTONE. [Concomitant]
     Active Substance: SPIRONOLACTONE
     Indication: BLOOD TESTOSTERONE INCREASED
  4. LYRICA [Suspect]
     Active Substance: PREGABALIN
     Indication: BACK PAIN
  5. METOPROLOL. [Concomitant]
     Active Substance: METOPROLOL
     Indication: MITRAL VALVE PROLAPSE
     Dosage: 50 MG, 1X/DAY
     Dates: start: 1970
  6. LYRICA [Suspect]
     Active Substance: PREGABALIN
     Indication: HERPES ZOSTER
     Dosage: 200 MG, 3X/DAY
     Dates: start: 2013
  7. SPIRONOLACTONE. [Concomitant]
     Active Substance: SPIRONOLACTONE
     Indication: HAIR GROWTH ABNORMAL
     Dosage: 100 MG, 1X/DAY

REACTIONS (3)
  - Activities of daily living impaired [Unknown]
  - Intentional product use issue [Unknown]
  - Pain [Unknown]
